FAERS Safety Report 6357269-6 (Version None)
Quarter: 2009Q3

REPORT INFORMATION
  Report Type: 
  Country: None (occurrence: None)
  Receive Date: 20090916
  Receipt Date: 20090904
  Transmission Date: 20100115
  Serious: Yes (Other)
  Sender: FDA-Public Use
  Company Number: PHHY2009DE22479

PATIENT
  Sex: Male
  Weight: 92 kg

DRUGS (3)
  1. DIOVAN [Suspect]
     Indication: HYPERTENSION
     Dosage: 80 MG, QD
     Route: 048
     Dates: start: 20090101, end: 20090521
  2. DIOVAN [Suspect]
     Indication: MYOCARDIAL INFARCTION
  3. ASPIRIN [Concomitant]

REACTIONS (1)
  - HAEMATURIA [None]
